FAERS Safety Report 13056779 (Version 2)
Quarter: 2017Q1

REPORT INFORMATION
  Report Type: Spontaneous
  Country: US (occurrence: US)
  Receive Date: 20161222
  Receipt Date: 20170103
  Transmission Date: 20170428
  Serious: Yes (Death, Other)
  Sender: FDA-Public Use
  Company Number: US-BAUSCH-BL-2016-032172

PATIENT
  Age: 60 Year
  Sex: Female

DRUGS (13)
  1. FLUOROURACIL. [Suspect]
     Active Substance: FLUOROURACIL
     Indication: INVASIVE DUCTAL BREAST CARCINOMA
     Route: 065
  2. ANASTROZOLE. [Suspect]
     Active Substance: ANASTROZOLE
     Indication: INVASIVE DUCTAL BREAST CARCINOMA
     Route: 065
  3. LETROZOLE. [Suspect]
     Active Substance: LETROZOLE
     Indication: INVASIVE DUCTAL BREAST CARCINOMA
     Route: 065
  4. DENOSUMAB [Suspect]
     Active Substance: DENOSUMAB
     Indication: BREAST CANCER METASTATIC
     Route: 065
  5. CYCLOPHOSPHAMIDE. [Suspect]
     Active Substance: CYCLOPHOSPHAMIDE
     Indication: INVASIVE DUCTAL BREAST CARCINOMA
     Route: 065
  6. ERIBULIN [Suspect]
     Active Substance: ERIBULIN
     Indication: BREAST CANCER METASTATIC
     Dosage: EVERY CYCLE
     Route: 065
  7. EVEROLIMUS [Suspect]
     Active Substance: EVEROLIMUS
     Indication: INVASIVE DUCTAL BREAST CARCINOMA
     Route: 065
  8. EXEMESTANE. [Suspect]
     Active Substance: EXEMESTANE
     Indication: BREAST CANCER METASTATIC
     Route: 065
  9. CAPECITABINE. [Suspect]
     Active Substance: CAPECITABINE
     Indication: BREAST CANCER METASTATIC
     Route: 065
  10. GEMCITABINE [Suspect]
     Active Substance: GEMCITABINE\GEMCITABINE HYDROCHLORIDE
     Indication: BREAST CANCER METASTATIC
     Dosage: EVERY CYCLE
     Route: 065
  11. FULVESTRANT [Suspect]
     Active Substance: FULVESTRANT
     Indication: BREAST CANCER METASTATIC
     Dosage: EVERY CYCLE
     Route: 065
  12. ADRIAMYCIN [Suspect]
     Active Substance: DOXORUBICIN HYDROCHLORIDE
     Indication: INVASIVE DUCTAL BREAST CARCINOMA
     Dosage: EVERY CYCLE
     Route: 065
  13. TAMOXIFEN [Suspect]
     Active Substance: TAMOXIFEN
     Indication: INVASIVE DUCTAL BREAST CARCINOMA
     Dosage: EVERY CYCLE
     Route: 065

REACTIONS (1)
  - Pseudocirrhosis [Fatal]
